FAERS Safety Report 10659257 (Version 3)
Quarter: 2015Q1

REPORT INFORMATION
  Report Type: Spontaneous
  Country: US (occurrence: US)
  Receive Date: 20141217
  Receipt Date: 20150317
  Transmission Date: 20150720
  Serious: Yes (Other)
  Sender: FDA-Public Use
  Company Number: PHEH2014US024792

PATIENT
  Sex: Male

DRUGS (3)
  1. DICLOFENAC POTASSIUM. [Suspect]
     Active Substance: DICLOFENAC POTASSIUM
     Indication: PRODUCT USED FOR UNKNOWN INDICATION
     Dosage: 50 MG, UNK
     Route: 065
  2. CATAFLAM [Suspect]
     Active Substance: DICLOFENAC POTASSIUM
     Indication: ARTHRITIS
     Dosage: 50 MG, (ONE TO TWO TIMES A WEEK)
     Route: 065
  3. NAPROSYN [Suspect]
     Active Substance: NAPROXEN
     Indication: PRODUCT USED FOR UNKNOWN INDICATION
     Route: 065

REACTIONS (10)
  - Drug ineffective [Unknown]
  - Feeling abnormal [Unknown]
  - Arthralgia [Unknown]
  - Myalgia [Unknown]
  - Pain in extremity [Unknown]
  - Diarrhoea [Unknown]
  - Pain [Unknown]
  - Ankylosing spondylitis [Unknown]
  - Wrong technique in drug usage process [Unknown]
  - Ligament pain [Unknown]
